FAERS Safety Report 9285208 (Version 2)
Quarter: 2013Q2

REPORT INFORMATION
  Report Type: Report from Study
  Country: US (occurrence: US)
  Receive Date: 20130513
  Receipt Date: 20130521
  Transmission Date: 20140414
  Serious: Yes (Hospitalization, Other)
  Sender: FDA-Public Use
  Company Number: US-MYLANLABS-2013S1007893

PATIENT
  Age: 44 Year
  Sex: Female

DRUGS (8)
  1. CLOZAPINE TABLETS [Suspect]
     Indication: PSYCHOTIC DISORDER
     Route: 048
     Dates: start: 201302
  2. CLOZAPINE TABLETS [Suspect]
     Indication: PSYCHOTIC DISORDER
     Route: 048
     Dates: end: 201301
  3. LORAZEPAM [Concomitant]
     Indication: ANXIETY
     Dosage: HAS TAKEN FOR YEARS
     Route: 048
  4. SIMVASTATIN [Concomitant]
     Dosage: HAS TAKEN FOR YEARS
     Route: 048
  5. OXCARBAZEPINE [Concomitant]
     Dosage: HAS TAKEN FOR YEARS
     Route: 048
  6. COGENTIN [Concomitant]
     Indication: TREMOR
     Dosage: HAS TAKEN FOR YEARS
     Route: 048
  7. SERTRALINE [Concomitant]
     Dosage: HAS TAKEN FOR YEARS
     Route: 048
  8. CLONIDINE [Concomitant]
     Route: 048

REACTIONS (3)
  - Uterine haemorrhage [Recovered/Resolved]
  - Granulocytopenia [Recovered/Resolved]
  - Leukopenia [Recovered/Resolved]
